FAERS Safety Report 19438955 (Version 1)
Quarter: 2021Q2

REPORT INFORMATION
  Report Type: Spontaneous
  Country: US (occurrence: US)
  Receive Date: 20210618
  Receipt Date: 20210618
  Transmission Date: 20210717
  Serious: Yes (Hospitalization)
  Sender: FDA-Public Use
  Company Number: US-PFIZER INC-2020468151

PATIENT
  Age: 64 Year
  Sex: Male
  Weight: 76.64 kg

DRUGS (4)
  1. INSPRA [Suspect]
     Active Substance: EPLERENONE
     Indication: CARDIAC FAILURE CONGESTIVE
     Dosage: 50 MG, 1X/DAY
     Dates: start: 2012
  2. INSPRA [Suspect]
     Active Substance: EPLERENONE
     Indication: BLOOD POTASSIUM DECREASED
     Dosage: 50 MG, 1X/DAY
     Route: 048
     Dates: start: 2017
  3. LASIX [Concomitant]
     Active Substance: FUROSEMIDE
     Indication: CARDIAC FAILURE CONGESTIVE
     Dosage: 320 MG, DAILY
     Dates: start: 2012
  4. FUROSEMIDE. [Concomitant]
     Active Substance: FUROSEMIDE
     Dosage: UNK
     Dates: start: 2012

REACTIONS (3)
  - Dyspnoea [Unknown]
  - Fluid retention [Unknown]
  - Circulatory collapse [Unknown]
